FAERS Safety Report 10602934 (Version 1)
Quarter: 2014Q4

REPORT INFORMATION
  Report Type: Spontaneous
  Country: US (occurrence: US)
  Receive Date: 20141124
  Receipt Date: 20141124
  Transmission Date: 20150529
  Serious: No
  Sender: FDA-Public Use
  Company Number: US-GILEAD-2014-0124048

PATIENT
  Age: 57 Year
  Sex: Male

DRUGS (2)
  1. LETAIRIS [Suspect]
     Active Substance: AMBRISENTAN
     Indication: PRODUCT USED FOR UNKNOWN INDICATION
     Dosage: 10 MG, QD
     Route: 065
     Dates: start: 20111208
  2. VENTAVIS [Concomitant]
     Active Substance: ILOPROST

REACTIONS (9)
  - Middle insomnia [Unknown]
  - Oedema [Unknown]
  - Dyspnoea [Unknown]
  - Fatigue [Unknown]
  - Sinusitis [Unknown]
  - Condition aggravated [Unknown]
  - Cough [Unknown]
  - Syncope [Unknown]
  - Chest pain [Unknown]

NARRATIVE: CASE EVENT DATE: 201411
